FAERS Safety Report 22626025 (Version 3)
Quarter: 2024Q4

REPORT INFORMATION
  Report Type: Report from Study
  Country: BR (occurrence: BR)
  Receive Date: 20230621
  Receipt Date: 20241108
  Transmission Date: 20250115
  Serious: Yes (Hospitalization, Other)
  Sender: TAKEDA
  Company Number: BR-TAKEDA-2023TUS059888

PATIENT
  Age: 68 Year
  Sex: Male

DRUGS (1)
  1. VEDOLIZUMAB [Suspect]
     Active Substance: VEDOLIZUMAB
     Indication: Colitis ulcerative
     Dosage: 300 MILLIGRAM
     Route: 042
     Dates: start: 20211201

REACTIONS (8)
  - Umbilical hernia [Recovered/Resolved with Sequelae]
  - Inguinal hernia [Recovered/Resolved with Sequelae]
  - Off label use [Unknown]
  - Product availability issue [Unknown]
  - Inappropriate schedule of product administration [Unknown]
  - Anaemia [Unknown]
  - Gastrointestinal inflammation [Unknown]
  - Testicular swelling [Recovering/Resolving]

NARRATIVE: CASE EVENT DATE: 20220601
